FAERS Safety Report 17109724 (Version 1)
Quarter: 2019Q4

REPORT INFORMATION
  Report Type: Spontaneous
  Country: US (occurrence: US)
  Receive Date: 20191108
  Receipt Date: 20191108
  Transmission Date: 20200122
  Serious: No
  Sender: FDA-Public Use
  Company Number: None

PATIENT
  Sex: Female

DRUGS (3)
  1. LEFLUNOMIDE. [Suspect]
     Active Substance: LEFLUNOMIDE
  2. TORADOL [Suspect]
     Active Substance: KETOROLAC TROMETHAMINE
  3. DECADRON [Suspect]
     Active Substance: DEXAMETHASONE

REACTIONS (8)
  - Diarrhoea [None]
  - Abdominal pain [None]
  - Rash [None]
  - Burning sensation mucosal [None]
  - Nausea [None]
  - Contraindicated product administered [None]
  - Gastrooesophageal reflux disease [None]
  - Vomiting [None]
